FAERS Safety Report 17866694 (Version 1)
Quarter: 2020Q2

REPORT INFORMATION
  Report Type: Spontaneous
  Country: US (occurrence: US)
  Receive Date: 20200605
  Receipt Date: 20200605
  Transmission Date: 20200714
  Serious: No
  Sender: FDA-Public Use
  Company Number: US-SA-2020SA144355

PATIENT

DRUGS (3)
  1. LISINOPRIL. [Concomitant]
     Active Substance: LISINOPRIL
  2. CHLORTHALIDON [Concomitant]
     Active Substance: CHLORTHALIDONE
  3. DUPIXENT [Suspect]
     Active Substance: DUPILUMAB
     Indication: ESSENTIAL HYPERTENSION
     Dosage: 300 MG, QOW
     Route: 058
     Dates: start: 20200410

REACTIONS (3)
  - Product use in unapproved indication [Unknown]
  - Hypertension [Not Recovered/Not Resolved]
  - Burning sensation [Not Recovered/Not Resolved]

NARRATIVE: CASE EVENT DATE: 20200410
